FAERS Safety Report 4418725-0 (Version None)
Quarter: 2004Q3

REPORT INFORMATION
  Report Type: 
  Country: None (occurrence: None)
  Receive Date: 20040809
  Receipt Date: 20031223
  Transmission Date: 20050211
  Serious: No
  Sender: FDA-Public Use
  Company Number: US-GLAXOSMITHKLINE-A0490943A

PATIENT
  Sex: Female

DRUGS (1)
  1. PAXIL [Suspect]
     Indication: MIGRAINE
     Route: 048
     Dates: start: 19930101

REACTIONS (2)
  - FATIGUE [None]
  - LIBIDO DECREASED [None]
